FAERS Safety Report 9504772 (Version 2)
Quarter: 2013Q3

REPORT INFORMATION
  Report Type: Report from Study
  Country: JP (occurrence: JP)
  Receive Date: 20130906
  Receipt Date: 20130906
  Transmission Date: 20140515
  Serious: Yes (Hospitalization)
  Sender: FDA-Public Use
  Company Number: JP-MYLANLABS-2013S1003730

PATIENT
  Age: 49 Year
  Sex: Female
  Weight: 47 kg

DRUGS (6)
  1. METHOTREXATE SODIUM [Suspect]
     Indication: RHEUMATOID ARTHRITIS
     Route: 048
     Dates: start: 20090527
  2. TOFACITINIB CITRATE [Suspect]
     Indication: RHEUMATOID ARTHRITIS
     Route: 048
     Dates: start: 20120711, end: 20111130
  3. REBAMIPIDE [Concomitant]
     Indication: PROPHYLAXIS
     Dates: start: 20070215
  4. FOLIAMIN [Concomitant]
     Indication: PROPHYLAXIS
     Dates: start: 20090527
  5. IBUPROFEN [Concomitant]
     Dates: start: 20081001
  6. MELOXICAM [Concomitant]
     Dates: start: 20070205

REACTIONS (1)
  - Transitional cell carcinoma [Recovering/Resolving]
